FAERS Safety Report 8308559-9 (Version None)
Quarter: 2012Q2

REPORT INFORMATION
  Report Type: 
  Country: None (occurrence: None)
  Receive Date: 20120424
  Receipt Date: 20120411
  Transmission Date: 20120825
  Serious: Yes (Life-Threatening, Hospitalization)
  Sender: FDA-Public Use
  Company Number: CA-ELI_LILLY_AND_COMPANY-CA201204003777

PATIENT
  Age: 55 Year
  Sex: Female
  Weight: 83.447 kg

DRUGS (8)
  1. CYMBALTA [Suspect]
     Dosage: 60 MG, QOD
  2. MAGNESIUM [Concomitant]
  3. MICARDIS [Concomitant]
  4. THYROID [Concomitant]
  5. CYMBALTA [Suspect]
     Dosage: 60 MG, QD
  6. CLONAZEPAM [Concomitant]
  7. HYDROCHLOROTHIAZIDE [Concomitant]
  8. PANTOPRAZOLE [Concomitant]

REACTIONS (15)
  - DRUG INEFFECTIVE [None]
  - DYSPHAGIA [None]
  - CONDITION AGGRAVATED [None]
  - HYPOTENSION [None]
  - RADIAL PULSE ABNORMAL [None]
  - OESOPHAGEAL SPASM [None]
  - PARAESTHESIA ORAL [None]
  - DEPRESSION [None]
  - VOMITING [None]
  - ABDOMINAL PAIN UPPER [None]
  - FATIGUE [None]
  - HEADACHE [None]
  - CHEST DISCOMFORT [None]
  - DIARRHOEA [None]
  - PARANOIA [None]
